FAERS Safety Report 6348944-8 (Version None)
Quarter: 2009Q3

REPORT INFORMATION
  Report Type: 
  Country: None (occurrence: None)
  Receive Date: 20090911
  Receipt Date: 20071005
  Transmission Date: 20100115
  Serious: Yes (Other)
  Sender: FDA-Public Use
  Company Number: US-ASTRAZENECA-2006UW22257

PATIENT
  Age: 37 Year
  Sex: Male
  Weight: 146.5 kg

DRUGS (8)
  1. SEROQUEL [Suspect]
     Route: 048
     Dates: start: 19980101, end: 20030101
  2. SEROQUEL [Suspect]
     Dosage: 100-700 MG
     Route: 048
     Dates: start: 20010328
  3. ABILIFY [Concomitant]
     Indication: AFFECTIVE DISORDER
     Dosage: 15-30 MG
     Route: 048
     Dates: start: 20040626
  4. ABILIFY [Concomitant]
     Indication: PSYCHOTIC BEHAVIOUR
     Dosage: 15-30 MG
     Route: 048
     Dates: start: 20040626
  5. ZYPREXA [Concomitant]
     Dosage: 5-15 MG
     Dates: start: 19990115
  6. XANAX [Concomitant]
     Dosage: 0.5-1.0 MG
     Dates: start: 20040626
  7. RISPERDAL [Concomitant]
     Dates: start: 20040813
  8. TRAZODONE [Concomitant]
     Dosage: 200 MG DAILY AT BED TIME
     Dates: start: 20060902

REACTIONS (3)
  - DIABETES MELLITUS [None]
  - NEUROPATHY PERIPHERAL [None]
  - TYPE 2 DIABETES MELLITUS [None]
